FAERS Safety Report 10032634 (Version 1)
Quarter: 2014Q1

REPORT INFORMATION
  Report Type: Spontaneous
  Country: US (occurrence: US)
  Receive Date: 20140324
  Receipt Date: 20140324
  Transmission Date: 20141002
  Serious: Yes (Death)
  Sender: FDA-Public Use
  Company Number: US-GLAXOSMITHKLINE-A1066204A

PATIENT
  Age: 76 Year
  Sex: Female

DRUGS (2)
  1. FLONASE [Suspect]
     Indication: RESPIRATORY DISORDER
     Route: 045
     Dates: start: 20100126
  2. ARIXTRA [Suspect]
     Indication: PRODUCT USED FOR UNKNOWN INDICATION
     Route: 065
     Dates: start: 20120221

REACTIONS (1)
  - Death [Fatal]
